FAERS Safety Report 9500059 (Version 2)
Quarter: 2014Q2

REPORT INFORMATION
  Report Type: Report from Study
  Country: FR (occurrence: FR)
  Receive Date: 20130905
  Receipt Date: 20140414
  Transmission Date: 20141212
  Serious: Yes (Other)
  Sender: FDA-Public Use
  Company Number: PHHY2013FR096965

PATIENT
  Age: 86 Year
  Sex: Female

DRUGS (13)
  1. ACLASTA/ZOLEDRONATE [Suspect]
     Indication: OSTEOPOROSIS
     Route: 042
     Dates: start: 2011
  2. ACLASTA/ZOLEDRONATE [Suspect]
     Dosage: UNK
     Route: 042
     Dates: start: 2012
  3. ZOCOR [Concomitant]
     Dosage: UNK
  4. DISCOTRINE [Concomitant]
     Dosage: UNK
  5. VASTAREL [Concomitant]
     Dosage: UNK
  6. KARDEGIC [Concomitant]
     Dosage: UNK
  7. TRIATEC [Concomitant]
     Dosage: UNK
  8. IMOVANE [Concomitant]
     Dosage: UNK
  9. IXPRIM [Concomitant]
     Dosage: UNK
  10. ALPRAZOLAM [Concomitant]
     Dosage: UNK
  11. SEROPLEX [Concomitant]
     Dosage: UNK
  12. INIPOMP [Concomitant]
     Dosage: UNK
  13. VOLTAREN//DICLOFENAC [Concomitant]
     Dosage: UNK UKN, UNK

REACTIONS (3)
  - Radius fracture [Recovering/Resolving]
  - Back pain [Not Recovered/Not Resolved]
  - Fall [Not Recovered/Not Resolved]
